FAERS Safety Report 6523535-4 (Version None)
Quarter: 2009Q4

REPORT INFORMATION
  Report Type: 
  Country: None (occurrence: None)
  Receive Date: 20091231
  Receipt Date: 20091221
  Transmission Date: 20100525
  Serious: Yes (Other)
  Sender: FDA-Public Use
  Company Number: PHHY2009MX57583

PATIENT
  Age: 76 Year
  Sex: Female

DRUGS (2)
  1. DIOVAN HCT [Suspect]
     Indication: HYPERTENSION
     Dosage: 1 TABLET (160/25MG) PER DAY
     Route: 048
     Dates: start: 20071201
  2. TENORMIN [Concomitant]
     Dosage: 1 TABLET PER DAY
     Route: 048

REACTIONS (1)
  - GLAUCOMA SURGERY [None]
